FAERS Safety Report 4859892-4 (Version None)
Quarter: 2005Q4

REPORT INFORMATION
  Report Type: 
  Country: None (occurrence: None)
  Receive Date: 20051215
  Receipt Date: 20051118
  Transmission Date: 20060501
  Serious: Yes (Life-Threatening, Hospitalization)
  Sender: FDA-Public Use
  Company Number: 05FRA0250

PATIENT
  Age: 67 Year
  Sex: Male

DRUGS (11)
  1. AGGRASTAT [Suspect]
     Indication: ACUTE CORONARY SYNDROME
     Dates: start: 20051110, end: 20051110
  2. ASA LYSINE (ACETYLSALICYLIC ACID) [Concomitant]
  3. BISOPROLOL (BISOPROLOL) [Concomitant]
  4. CLOPIDOGREL BISULFATE [Concomitant]
  5. ALBUTEROL SULFATE (+) IPRATROPIUM BROMID (SALBUTAMOL SULFATE) [Concomitant]
  6. ATENOLOL [Concomitant]
  7. FLUTICASONE PROPIONATE [Concomitant]
  8. HYDROXYZINE HCL [Concomitant]
  9. ISOSORIBIDE DINITRATE (ISOSORIBIDE) [Concomitant]
  10. MORPHINE [Concomitant]
  11. ATORVASTATIN CALCIUM [Concomitant]

REACTIONS (1)
  - THROMBOCYTOPENIA [None]
